FAERS Safety Report 9279629 (Version 2)
Quarter: 2013Q2

REPORT INFORMATION
  Report Type: Spontaneous
  Country: US (occurrence: US)
  Receive Date: 20130509
  Receipt Date: 20130617
  Transmission Date: 20140414
  Serious: Yes (Hospitalization)
  Sender: FDA-Public Use
  Company Number: US-BIOGENIDEC-2013BI039856

PATIENT
  Age: 37 Year
  Sex: Female

DRUGS (1)
  1. TYSABRI [Suspect]
     Indication: MULTIPLE SCLEROSIS
     Route: 042
     Dates: start: 20091109

REACTIONS (8)
  - Multiple sclerosis relapse [Unknown]
  - Hypoaesthesia [Unknown]
  - Paraesthesia [Unknown]
  - Balance disorder [Unknown]
  - Gait disturbance [Unknown]
  - Visual impairment [Unknown]
  - Bladder disorder [Unknown]
  - Stress [Unknown]
